FAERS Safety Report 8854162 (Version 1)
Quarter: 2012Q4

REPORT INFORMATION
  Report Type: 
  Country: US (occurrence: US)
  Receive Date: 20121022
  Receipt Date: 20121022
  Transmission Date: 20130627
  Serious: Yes (Hospitalization, Other)
  Sender: FDA-Public Use
  Company Number: US-SANOFI-AVENTIS-2012SA074211

PATIENT
  Age: 68 Year
  Sex: Female

DRUGS (5)
  1. LANTUS SOLOSTAR [Suspect]
     Indication: TYPE II DIABETES MELLITUS
     Dosage: Dose:15 unit(s)
     Route: 058
     Dates: start: 200906
  2. LANTUS SOLOSTAR [Suspect]
     Indication: TYPE II DIABETES MELLITUS
     Dosage: Dose:3 unit(s)
     Route: 058
  3. LANTUS SOLOSTAR [Suspect]
     Indication: TYPE II DIABETES MELLITUS
     Dosage: Dose:5 unit(s)
     Route: 058
  4. SOLOSTAR [Suspect]
     Indication: TYPE II DIABETES MELLITUS
     Dates: start: 200906
  5. NOVOLOG [Suspect]
     Route: 065
     Dates: start: 200906

REACTIONS (4)
  - Pancreatic carcinoma [Not Recovered/Not Resolved]
  - Pancreatic carcinoma recurrent [Not Recovered/Not Resolved]
  - Hypoglycaemia [Unknown]
  - Blood glucose increased [Unknown]
